FAERS Safety Report 7296803-9 (Version None)
Quarter: 2011Q1

REPORT INFORMATION
  Report Type: 
  Country: None (occurrence: None)
  Receive Date: 20110216
  Receipt Date: 20110210
  Transmission Date: 20110831
  Serious: Yes (Hospitalization)
  Sender: FDA-Public Use
  Company Number: B0700016A

PATIENT
  Age: 29 Year
  Sex: Male

DRUGS (3)
  1. SAROTEN [Concomitant]
  2. HOMEOPATHIC MEDICATION [Concomitant]
  3. AUGMENTIN '125' [Suspect]
     Dates: start: 20110202

REACTIONS (4)
  - BLISTER [None]
  - DRUG INTOLERANCE [None]
  - ERYTHEMA [None]
  - SWELLING [None]
